FAERS Safety Report 7434469-5 (Version None)
Quarter: 2011Q2

REPORT INFORMATION
  Report Type: 
  Country: None (occurrence: None)
  Receive Date: 20110420
  Receipt Date: 20110420
  Transmission Date: 20111010
  Serious: Yes (Other)
  Sender: FDA-Public Use
  Company Number: None

PATIENT
  Age: 66 Year
  Sex: Female
  Weight: 72.5755 kg

DRUGS (1)
  1. CIPRO [Suspect]
     Indication: URINARY TRACT INFECTION
     Dosage: ONE PILL TWICE A DAY PO
     Route: 048
     Dates: start: 20110315, end: 20110324

REACTIONS (2)
  - ARTHRALGIA [None]
  - TENDONITIS [None]
